FAERS Safety Report 5663495-1 (Version None)
Quarter: 2008Q1

REPORT INFORMATION
  Report Type: 
  Country: None (occurrence: None)
  Receive Date: 20080307
  Receipt Date: 20080303
  Transmission Date: 20080703
  Serious: Yes (Other)
  Sender: FDA-Public Use
  Company Number: 73405

PATIENT
  Age: 42 Year
  Sex: Female

DRUGS (2)
  1. DIPHENHYDRAMINE HCL [Suspect]
     Indication: DRUG ABUSE
     Dosage: 750-1000 MG/DAILY/ORALLY
     Route: 048
  2. DIPHENHYDRAMINE HCL [Suspect]
     Indication: DRUG DEPENDENCE
     Dosage: 750-1000 MG/DAILY/ORALLY
     Route: 048

REACTIONS (3)
  - DYSKINESIA [None]
  - MUSCLE TWITCHING [None]
  - SOMNOLENCE [None]
